FAERS Safety Report 17370724 (Version 1)
Quarter: 2020Q1

REPORT INFORMATION
  Report Type: Other
  Country: US (occurrence: US)
  Receive Date: 20200205
  Receipt Date: 20200205
  Transmission Date: 20200409
  Serious: No
  Sender: FDA-Public Use
  Company Number: US-AMAG PHARMACEUTICALS, INC.-AMAG202000356

PATIENT
  Sex: Female

DRUGS (1)
  1. MAKENA [Suspect]
     Active Substance: HYDROXYPROGESTERONE CAPROATE
     Indication: PREMATURE DELIVERY
     Dosage: 250MG/M, WEEKLY
     Route: 058
     Dates: start: 20191002, end: 202001

REACTIONS (3)
  - Musculoskeletal stiffness [Unknown]
  - Injection site swelling [Unknown]
  - Peripheral swelling [Unknown]
